FAERS Safety Report 4951056-9 (Version None)
Quarter: 2006Q1

REPORT INFORMATION
  Report Type: 
  Country: None (occurrence: None)
  Receive Date: 20060322
  Receipt Date: 20050923
  Transmission Date: 20060701
  Serious: Yes (Death, Hospitalization, Disabling)
  Sender: FDA-Public Use
  Company Number: US-MERCK-0509USA03972

PATIENT
  Age: 67 Year
  Sex: Female
  Weight: 80 kg

DRUGS (1)
  1. VIOXX [Suspect]
     Indication: ARTHRALGIA
     Route: 048

REACTIONS (39)
  - ACUTE MYOCARDIAL INFARCTION [None]
  - AMNESIA [None]
  - ANAEMIA [None]
  - ANOREXIA [None]
  - AORTIC VALVE STENOSIS [None]
  - ARTHRALGIA [None]
  - CARDIAC ENZYMES INCREASED [None]
  - CARDIAC FAILURE CONGESTIVE [None]
  - CARDIO-RESPIRATORY ARREST [None]
  - CONSTIPATION [None]
  - CORONARY ARTERY DISEASE [None]
  - CORONARY ARTERY STENOSIS [None]
  - DEPRESSION [None]
  - DIABETIC NEPHROPATHY [None]
  - DIALYSIS [None]
  - DILATATION ATRIAL [None]
  - DRUG HYPERSENSITIVITY [None]
  - DYSPEPSIA [None]
  - DYSPHAGIA [None]
  - FLUID OVERLOAD [None]
  - GASTROOESOPHAGEAL REFLUX DISEASE [None]
  - HYPERLIPIDAEMIA [None]
  - HYPERSENSITIVITY [None]
  - HYPERTENSION [None]
  - HYPERTENSIVE NEPHROPATHY [None]
  - HYPOKALAEMIA [None]
  - HYPOMAGNESAEMIA [None]
  - HYPOTENSION [None]
  - MITRAL VALVE CALCIFICATION [None]
  - NEOPLASM MALIGNANT [None]
  - OBESITY [None]
  - ODYNOPHAGIA [None]
  - PARKINSON'S DISEASE [None]
  - PULMONARY OEDEMA [None]
  - RENAL FAILURE CHRONIC [None]
  - SHOCK [None]
  - SINUS TACHYCARDIA [None]
  - VENTRICULAR HYPERTROPHY [None]
  - WEIGHT DECREASED [None]
